FAERS Safety Report 24347006 (Version 1)
Quarter: 2024Q3

REPORT INFORMATION
  Report Type: Spontaneous
  Country: US (occurrence: US)
  Receive Date: 20240921
  Receipt Date: 20240921
  Transmission Date: 20241016
  Serious: No
  Sender: SANOFI AVENTIS
  Company Number: US-SANOFI-02214853

PATIENT
  Age: 81 Year
  Sex: Female

DRUGS (2)
  1. TOUJEO MAX [Suspect]
     Active Substance: INSULIN GLARGINE
     Indication: Type 2 diabetes mellitus
     Dosage: 8 IU, QD
     Dates: start: 202408, end: 2024
  2. TOUJEO MAX [Suspect]
     Active Substance: INSULIN GLARGINE
     Dosage: 24 IU, QD
     Dates: start: 2024

REACTIONS (2)
  - Chills [Unknown]
  - Back pain [Unknown]

NARRATIVE: CASE EVENT DATE: 20240101
